FAERS Safety Report 14636468 (Version 1)
Quarter: 2018Q1

REPORT INFORMATION
  Report Type: Spontaneous
  Country: CO (occurrence: CO)
  Receive Date: 20180314
  Receipt Date: 20180314
  Transmission Date: 20180509
  Serious: Yes (Life-Threatening)
  Sender: FDA-Public Use
  Company Number: CO-JNJFOC-20180310263

PATIENT

DRUGS (1)
  1. EVICEL [Suspect]
     Active Substance: FIBRINOGEN HUMAN\THROMBIN HUMAN
     Indication: CRANIAL OPERATION
     Route: 061

REACTIONS (1)
  - Brain oedema [Unknown]

NARRATIVE: CASE EVENT DATE: 20180215
